FAERS Safety Report 4834212-X (Version None)
Quarter: 2005Q4

REPORT INFORMATION
  Report Type: 
  Country: None (occurrence: None)
  Receive Date: 20051122
  Receipt Date: 20051109
  Transmission Date: 20060501
  Serious: Yes (Hospitalization)
  Sender: FDA-Public Use
  Company Number: 2005CG01854

PATIENT
  Age: 34 Year
  Sex: Female

DRUGS (5)
  1. TENORMIN [Suspect]
     Route: 048
     Dates: start: 20051015, end: 20051015
  2. ATARAX [Suspect]
     Route: 048
     Dates: start: 20051015, end: 20051015
  3. RIVOTRIL [Concomitant]
  4. LEXOMIL [Concomitant]
  5. SERESTA [Concomitant]

REACTIONS (5)
  - INTENTIONAL OVERDOSE [None]
  - LOSS OF CONSCIOUSNESS [None]
  - SYNCOPE [None]
  - TORSADE DE POINTES [None]
  - TREMOR [None]
